FAERS Safety Report 13934608 (Version 3)
Quarter: 2017Q3

REPORT INFORMATION
  Report Type: Report from Study
  Country: CN (occurrence: CN)
  Receive Date: 20170905
  Receipt Date: 20170927
  Transmission Date: 20171127
  Serious: Yes (Hospitalization)
  Sender: FDA-Public Use
  Company Number: CN-ROCHE-1921063

PATIENT
  Sex: Female
  Weight: 45 kg

DRUGS (1)
  1. AVASTIN [Suspect]
     Active Substance: BEVACIZUMAB
     Indication: COLON CANCER
     Route: 041
     Dates: start: 20161203

REACTIONS (8)
  - Inflammation [Recovering/Resolving]
  - Diarrhoea [Unknown]
  - Poor quality sleep [Unknown]
  - General physical health deterioration [Unknown]
  - Insomnia [Unknown]
  - Discomfort [Unknown]
  - Pyrexia [Recovering/Resolving]
  - Hyperpyrexia [Recovering/Resolving]
